FAERS Safety Report 20956608 (Version 1)
Quarter: 2022Q2

REPORT INFORMATION
  Report Type: Report from Study
  Country: BR (occurrence: BR)
  Receive Date: 20220614
  Receipt Date: 20220614
  Transmission Date: 20220721
  Serious: Yes (Hospitalization, Other)
  Sender: FDA-Public Use
  Company Number: BR-NOVARTISPH-NVSC2022BR124910

PATIENT
  Sex: Female
  Weight: 70 kg

DRUGS (3)
  1. ROSUVASTATIN [Suspect]
     Active Substance: ROSUVASTATIN
     Indication: Blood cholesterol
     Dosage: 10 MG (ONE TABLET), QN (START DATE: ABOUT 5 YEARS AGO)
     Route: 048
  2. REVANGE [Concomitant]
     Indication: Pain
     Dosage: 1 DOSAGE FORM (ONE TABLET), QN
     Route: 048
     Dates: start: 2018
  3. ATENOLOL [Concomitant]
     Active Substance: ATENOLOL
     Indication: Blood pressure measurement
     Dosage: 1 DOSAGE FORM (ONE TABLET), QN (ABOUT 10 YEARS AGO)
     Route: 048

REACTIONS (7)
  - Accident [Recovered/Resolved with Sequelae]
  - Procedural pain [Not Recovered/Not Resolved]
  - Gait disturbance [Not Recovered/Not Resolved]
  - Skeletal injury [Not Recovered/Not Resolved]
  - Spinal flattening [Not Recovered/Not Resolved]
  - Cataract [Not Recovered/Not Resolved]
  - Visual impairment [Not Recovered/Not Resolved]

NARRATIVE: CASE EVENT DATE: 20180101
